FAERS Safety Report 16899158 (Version 2)
Quarter: 2020Q1

REPORT INFORMATION
  Report Type: Spontaneous
  Country: US (occurrence: US)
  Receive Date: 20191009
  Receipt Date: 20200106
  Transmission Date: 20200409
  Serious: Yes (Other)
  Sender: FDA-Public Use
  Company Number: US-PFIZER INC-2019434093

PATIENT
  Age: 67 Year
  Sex: Female

DRUGS (12)
  1. LACOSAMIDE. [Concomitant]
     Active Substance: LACOSAMIDE
     Indication: SEIZURE
     Dosage: UNK
     Dates: start: 2017, end: 2019
  2. DILANTIN [Suspect]
     Active Substance: PHENYTOIN
     Indication: SEIZURE
     Dosage: UNK
     Route: 048
     Dates: start: 1999, end: 2019
  3. VENTOLIN [Concomitant]
     Active Substance: ALBUTEROL SULFATE
     Indication: ASTHMA
     Dosage: UNK
     Dates: start: 2018, end: 2019
  4. VIMPAT [Concomitant]
     Active Substance: LACOSAMIDE
     Indication: EPILEPSY
     Dosage: 1 DF, DAILY
     Dates: start: 2017, end: 2019
  5. TOPIRAMATE. [Concomitant]
     Active Substance: TOPIRAMATE
     Indication: EPILEPSY
  6. ANASTRAZOLE DENK [Concomitant]
     Active Substance: ANASTROZOLE
     Indication: NEOPLASM PROPHYLAXIS
     Dosage: UNK
     Dates: start: 2014, end: 2019
  7. VENLAFAXINE [Concomitant]
     Active Substance: VENLAFAXINE HYDROCHLORIDE
     Indication: DEPRESSION
     Dosage: UNK
     Dates: start: 2017, end: 2019
  8. MYRBETRIQ [Concomitant]
     Active Substance: MIRABEGRON
     Dosage: UNK
     Dates: start: 2019
  9. TOPIRAMATE. [Concomitant]
     Active Substance: TOPIRAMATE
     Indication: SEIZURE
     Dosage: 1 DF, DAILY
     Dates: start: 2013, end: 2017
  10. FISH OIL [Concomitant]
     Active Substance: FISH OIL
     Indication: BONE DENSITY ABNORMAL
     Dosage: UNK
     Dates: start: 2018, end: 2019
  11. VITAMIN D3 K2 [Concomitant]
     Indication: BONE DENSITY ABNORMAL
     Dosage: UNK
     Dates: start: 2015, end: 2019
  12. DILANTIN [Suspect]
     Active Substance: PHENYTOIN
     Indication: SEIZURE
     Dosage: UNK

REACTIONS (10)
  - Dysgraphia [Unknown]
  - Gait disturbance [Unknown]
  - Impaired driving ability [Unknown]
  - Cerebellar atrophy [Unknown]
  - Impaired quality of life [Unknown]
  - Mobility decreased [Unknown]
  - Loss of personal independence in daily activities [Unknown]
  - Impaired work ability [Unknown]
  - Speech disorder [Unknown]
  - Impaired self-care [Unknown]

NARRATIVE: CASE EVENT DATE: 20171005
